FAERS Safety Report 5906048-X (Version None)
Quarter: 2008Q4

REPORT INFORMATION
  Report Type: 
  Country: None (occurrence: None)
  Receive Date: 20081002
  Receipt Date: 20080919
  Transmission Date: 20090506
  Serious: Yes (Other)
  Sender: FDA-Public Use
  Company Number: FR-ELI_LILLY_AND_COMPANY-FR200807002123

PATIENT
  Age: 84 Year
  Sex: Female
  Weight: 73 kg

DRUGS (7)
  1. CYMBALTA [Suspect]
     Indication: DEPRESSION
     Dosage: 60 MG, DAILY (1/D)
     Route: 048
     Dates: start: 20080502, end: 20080505
  2. TRIATEC [Concomitant]
     Indication: HYPERTENSION
     Dosage: UNK, UNKNOWN
     Route: 048
  3. ALDACTAZINE [Concomitant]
     Indication: HYPERTENSION
     Dosage: UNK, AS NEEDED
     Route: 048
  4. TAHOR [Concomitant]
     Dosage: 20, UNK
     Route: 048
  5. OMEPRAZOLE [Concomitant]
     Dosage: 20
     Route: 048
  6. CALCITE D [Concomitant]
     Dosage: UNK, UNKNOWN
     Route: 048
  7. KARDEGIC [Concomitant]
     Dosage: UNK, UNKNOWN
     Route: 048

REACTIONS (2)
  - FALL [None]
  - HYPOTENSION [None]
